FAERS Safety Report 12978324 (Version 2)
Quarter: 2017Q1

REPORT INFORMATION
  Report Type: Spontaneous
  Country: US (occurrence: US)
  Receive Date: 20161128
  Receipt Date: 20170112
  Transmission Date: 20170428
  Serious: No
  Sender: FDA-Public Use
  Company Number: US-PFIZER INC-2016541556

PATIENT
  Age: 65 Year
  Sex: Male

DRUGS (1)
  1. SUTENT [Suspect]
     Active Substance: SUNITINIB MALATE
     Indication: RENAL CANCER METASTATIC
     Dosage: 25 MG, CYCLIC (2 WEEKS ON/1 WEEK OFF)

REACTIONS (2)
  - Dyspnoea [Unknown]
  - Pain in extremity [Unknown]
